FAERS Safety Report 6999408-X (Version None)
Quarter: 2010Q3

REPORT INFORMATION
  Report Type: 
  Country: None (occurrence: None)
  Receive Date: 20100920
  Receipt Date: 20100617
  Transmission Date: 20110219
  Serious: No
  Sender: FDA-Public Use
  Company Number: US-ASTRAZENECA-2010SE28190

PATIENT
  Age: 39 Year
  Sex: Male
  Weight: 92.1 kg

DRUGS (11)
  1. SEROQUEL [Suspect]
     Indication: BIPOLAR DISORDER
     Route: 048
     Dates: start: 20090101
  2. SEROQUEL [Suspect]
     Indication: MANIA
     Route: 048
     Dates: start: 20090101
  3. SEROQUEL [Suspect]
     Route: 048
     Dates: start: 20090101, end: 20090101
  4. SEROQUEL [Suspect]
     Route: 048
     Dates: start: 20090101, end: 20090101
  5. SEROQUEL [Suspect]
     Route: 048
     Dates: start: 20090101, end: 20100101
  6. SEROQUEL [Suspect]
     Route: 048
     Dates: start: 20090101, end: 20100101
  7. SEROQUEL [Suspect]
     Route: 048
     Dates: start: 20100101
  8. SEROQUEL [Suspect]
     Route: 048
     Dates: start: 20100101
  9. LITHIUM CARBONATE [Concomitant]
  10. PROPRANOLOL [Concomitant]
  11. VISTARIL [Concomitant]

REACTIONS (8)
  - DRUG DOSE OMISSION [None]
  - ERECTILE DYSFUNCTION [None]
  - FEELING ABNORMAL [None]
  - INCORRECT DOSE ADMINISTERED [None]
  - INSOMNIA [None]
  - MOOD SWINGS [None]
  - SOMNOLENCE [None]
  - WEIGHT INCREASED [None]
